FAERS Safety Report 15785723 (Version 1)
Quarter: 2018Q4

REPORT INFORMATION
  Report Type: Spontaneous
  Country: US (occurrence: US)
  Receive Date: 20181212
  Receipt Date: 20181212
  Transmission Date: 20190205
  Serious: Yes (Hospitalization)
  Sender: FDA-Public Use
  Company Number: None

PATIENT
  Sex: Male

DRUGS (7)
  1. FUROSEMIDE. [Concomitant]
     Active Substance: FUROSEMIDE
  2. ALPRAZOLAM. [Concomitant]
     Active Substance: ALPRAZOLAM
  3. VITAMIN D [Concomitant]
     Active Substance: CHOLECALCIFEROL
  4. SPIRONOLACT [Concomitant]
     Active Substance: SPIRONOLACTONE
  5. DIGOXIN. [Concomitant]
     Active Substance: DIGOXIN
  6. OPSUMIT [Concomitant]
     Active Substance: MACITENTAN
  7. SILDENAFIL, 20 MG [Suspect]
     Active Substance: SILDENAFIL
     Indication: PULMONARY ARTERIAL HYPERTENSION
     Route: 048
     Dates: start: 20140422

REACTIONS (1)
  - Therapeutic procedure [None]
